FAERS Safety Report 25234671 (Version 7)
Quarter: 2025Q4

REPORT INFORMATION
  Report Type: Spontaneous
  Country: EU (occurrence: EU)
  Receive Date: 20250424
  Receipt Date: 20251205
  Transmission Date: 20260117
  Serious: Yes (Life-Threatening, Hospitalization, Other)
  Sender: AUROBINDO
  Company Number: EU-JNJFOC-20250367145

PATIENT
  Age: 65 Year
  Sex: Female
  Weight: 83 kg

DRUGS (4)
  1. LENALIDOMIDE [Suspect]
     Active Substance: LENALIDOMIDE
     Indication: Plasma cell myeloma
     Dosage: 5 MILLIGRAM
     Dates: start: 20191001, end: 20250304
  2. BORTEZOMIB [Suspect]
     Active Substance: BORTEZOMIB
     Indication: Plasma cell myeloma
     Dosage: 13 MILLIGRAM/SQ. METER (MOST RECENT DOSE ADMINISTERED ON 12-JUN-2020)
     Dates: start: 20191001, end: 20200612
  3. DARATUMUMAB [Suspect]
     Active Substance: DARATUMUMAB
     Indication: Plasma cell myeloma
     Dosage: 1800 MILLIGRAM (MOST RECENT DOSE ADMINISTERED ON 12-JAN-2023)
     Dates: start: 20191001, end: 20230112
  4. DEXAMETHASONE [Suspect]
     Active Substance: DEXAMETHASONE
     Indication: Plasma cell myeloma
     Dosage: 10 MILLIGRAM (MOST RECENT DOSE ADMINISTERED ON 10-JUN-2020)
     Dates: start: 20191001, end: 20200610

REACTIONS (6)
  - Breast cancer [Not Recovered/Not Resolved]
  - Pneumococcal sepsis [Recovered/Resolved]
  - Pneumococcal infection [Recovered/Resolved]
  - Intervertebral discitis [Recovered/Resolved]
  - Arthritis infective [Recovered/Resolved]
  - Lung adenocarcinoma [Not Recovered/Not Resolved]

NARRATIVE: CASE EVENT DATE: 20250305
